FAERS Safety Report 5373520-3 (Version None)
Quarter: 2007Q2

REPORT INFORMATION
  Report Type: 
  Country: None (occurrence: None)
  Receive Date: 20070628
  Receipt Date: 20070625
  Transmission Date: 20071010
  Serious: Yes (Death)
  Sender: FDA-Public Use
  Company Number: A0660307A

PATIENT
  Age: 66 Year
  Sex: Male
  Weight: 49 kg

DRUGS (3)
  1. SERETIDE [Suspect]
  2. LOSARTAN POTASSIUM [Concomitant]
     Dosage: 10MG PER DAY
     Dates: start: 20050601, end: 20070520
  3. SIMVASTATIN [Concomitant]
     Dosage: 20MG PER DAY
     Dates: start: 20040601, end: 20070520

REACTIONS (1)
  - DEATH [None]
